FAERS Safety Report 7687006-4 (Version None)
Quarter: 2011Q3

REPORT INFORMATION
  Report Type: 
  Country: None (occurrence: None)
  Receive Date: 20110816
  Receipt Date: 20110812
  Transmission Date: 20111222
  Serious: Yes (Hospitalization)
  Sender: FDA-Public Use
  Company Number: ES-ABBOTT-11P-144-0843481-00

PATIENT
  Age: 52 Year
  Sex: Male

DRUGS (16)
  1. HUMIRA [Suspect]
     Indication: RHEUMATOID ARTHRITIS
     Dates: start: 20101029, end: 20101112
  2. METHYLPREDNISOLONE [Suspect]
     Indication: ASTHMA
     Route: 048
     Dates: start: 20100801
  3. TIOTROPIUM [Concomitant]
     Indication: ASTHMA
  4. LEFLUNOMIDE [Concomitant]
     Indication: RHEUMATOID ARTHRITIS
     Route: 048
     Dates: start: 20030601
  5. METHYLPREDNISOLONE [Suspect]
     Indication: BRONCHIAL HYPERREACTIVITY
  6. METHYLPREDNISOLONE [Suspect]
     Indication: RHEUMATOID ARTHRITIS
  7. SALMETEROL/FLUTICASONE [Concomitant]
     Indication: ASTHMA
  8. OMEPRAZOLE [Concomitant]
     Indication: HELICOBACTER GASTRITIS
  9. METHOTREXATE [Concomitant]
     Indication: RHEUMATOID ARTHRITIS
     Route: 058
     Dates: start: 20021201
  10. CARBOCYSTEINE [Concomitant]
     Indication: ASTHMA
  11. MOTELUKAST [Concomitant]
     Indication: ASTHMA
  12. TIOTROPIUM [Concomitant]
     Indication: BRONCHIAL HYPERREACTIVITY
  13. CARBOCYSTEINE [Concomitant]
     Indication: BRONCHIAL HYPERREACTIVITY
  14. MOTELUKAST [Concomitant]
     Indication: BRONCHIAL HYPERREACTIVITY
  15. SALMETEROL/FLUTICASONE [Concomitant]
     Indication: BRONCHIAL HYPERREACTIVITY
  16. HIDROXICHLOROQUINE [Concomitant]
     Indication: RHEUMATOID ARTHRITIS
     Route: 048
     Dates: start: 20021201

REACTIONS (9)
  - COUGH [None]
  - RESPIRATORY TRACT INFECTION [None]
  - PYREXIA [None]
  - MALAISE [None]
  - PLEURITIC PAIN [None]
  - PNEUMONIA [None]
  - SPUTUM PURULENT [None]
  - DYSPNOEA [None]
  - WHEEZING [None]
